FAERS Safety Report 8396444-6 (Version None)
Quarter: 2012Q2

REPORT INFORMATION
  Report Type: 
  Country: None (occurrence: None)
  Receive Date: 20120530
  Receipt Date: 20120515
  Transmission Date: 20120825
  Serious: Yes (Other)
  Sender: FDA-Public Use
  Company Number: AR-ROCHE-1070949

PATIENT
  Sex: Male

DRUGS (1)
  1. LUCENTIS [Suspect]
     Indication: VISUAL IMPAIRMENT
     Dosage: 3 AMPULES
     Route: 050
     Dates: start: 20110101

REACTIONS (5)
  - DEPRESSED MOOD [None]
  - ANXIETY [None]
  - VISUAL IMPAIRMENT [None]
  - EYE SWELLING [None]
  - BLOOD GLUCOSE INCREASED [None]
